FAERS Safety Report 13119243 (Version 1)
Quarter: 2017Q1

REPORT INFORMATION
  Report Type: Spontaneous
  Country: US (occurrence: US)
  Receive Date: 20170116
  Receipt Date: 20170116
  Transmission Date: 20170428
  Serious: Yes (Hospitalization, Other)
  Sender: FDA-Public Use
  Company Number: US-BEH-2017076986

PATIENT
  Sex: Female
  Weight: 81.63 kg

DRUGS (27)
  1. DIPHENHYDRAMINE. [Concomitant]
     Active Substance: DIPHENHYDRAMINE
  2. EPIPEN [Concomitant]
     Active Substance: EPINEPHRINE
  3. CYMBALTA [Concomitant]
     Active Substance: DULOXETINE HYDROCHLORIDE
  4. OMEPRAZOLE. [Concomitant]
     Active Substance: OMEPRAZOLE
  5. VITAMIN D2 [Concomitant]
     Active Substance: ERGOCALCIFEROL
  6. PERCOCET                           /00446701/ [Concomitant]
     Active Substance: ACETAMINOPHEN\OXYCODONE HYDROCHLORIDE\OXYCODONE TEREPHTHALATE
  7. ACETAMINOPHEN. [Concomitant]
     Active Substance: ACETAMINOPHEN
  8. ARMOUR THYROID [Concomitant]
     Active Substance: THYROID, PORCINE
  9. LINZESS [Concomitant]
     Active Substance: LINACLOTIDE
  10. DILTIAZEM. [Concomitant]
     Active Substance: DILTIAZEM
  11. COUMADIN [Concomitant]
     Active Substance: WARFARIN SODIUM
  12. METOPROLOL. [Concomitant]
     Active Substance: METOPROLOL
  13. METHYLPHENIDATE. [Concomitant]
     Active Substance: METHYLPHENIDATE
  14. KLOR-CON [Concomitant]
     Active Substance: POTASSIUM CHLORIDE
  15. CHEMOTHERAPEUTICS [Suspect]
     Active Substance: UNSPECIFIED INGREDIENT
     Indication: B-CELL LYMPHOMA
     Dosage: UNK
     Route: 065
  16. CELEXA [Suspect]
     Active Substance: CITALOPRAM HYDROBROMIDE
  17. HIZENTRA [Suspect]
     Active Substance: HUMAN IMMUNOGLOBULIN G
     Indication: IMMUNODEFICIENCY COMMON VARIABLE
     Dosage: 10 G, QW
     Route: 058
     Dates: start: 20160504
  18. FLONASE [Concomitant]
     Active Substance: FLUTICASONE PROPIONATE
  19. ADVAIR HFA [Concomitant]
     Active Substance: FLUTICASONE PROPIONATE\SALMETEROL XINAFOATE
  20. SIMVASTATIN. [Concomitant]
     Active Substance: SIMVASTATIN
  21. HYDROCHLOROTHIAZIDE. [Concomitant]
     Active Substance: HYDROCHLOROTHIAZIDE
  22. LIDOCAINE. [Concomitant]
     Active Substance: LIDOCAINE
  23. VESICARE [Concomitant]
     Active Substance: SOLIFENACIN SUCCINATE
  24. IRON [Concomitant]
     Active Substance: IRON
  25. ABILIFY [Concomitant]
     Active Substance: ARIPIPRAZOLE
  26. LIDOCAINE/PRILOCAINE [Concomitant]
     Active Substance: LIDOCAINE\PRILOCAINE
  27. VENTOLIN [Concomitant]
     Active Substance: ALBUTEROL SULFATE

REACTIONS (4)
  - Diarrhoea [Unknown]
  - Dehydration [Unknown]
  - B-cell lymphoma recurrent [Unknown]
  - Loss of consciousness [Unknown]
